FAERS Safety Report 21345792 (Version 7)
Quarter: 2023Q4

REPORT INFORMATION
  Report Type: Spontaneous
  Country: US (occurrence: US)
  Receive Date: 20220916
  Receipt Date: 20231019
  Transmission Date: 20240110
  Serious: No
  Sender: FDA-Public Use
  Company Number: US-PFIZER INC-202201163827

PATIENT
  Age: 51 Year
  Sex: Female
  Weight: 86.182 kg

DRUGS (2)
  1. INLYTA [Suspect]
     Active Substance: AXITINIB
     Indication: Renal cancer
     Dosage: 5 MG, TWICE A DAY
     Dates: start: 20220815
  2. KEYTRUDA [Concomitant]
     Active Substance: PEMBROLIZUMAB
     Dosage: UNK, MONTHLY (EVERY 4 WEEKS)
     Dates: start: 20220613

REACTIONS (13)
  - Illness [Unknown]
  - Abdominal distension [Unknown]
  - Frequent bowel movements [Unknown]
  - Aphonia [Unknown]
  - Peripheral swelling [Recovering/Resolving]
  - Blister [Recovering/Resolving]
  - Eating disorder [Recovering/Resolving]
  - Erythema [Recovering/Resolving]
  - Pain in extremity [Recovering/Resolving]
  - Dysphonia [Recovering/Resolving]
  - Decreased appetite [Recovering/Resolving]
  - Vomiting [Unknown]
  - Dry skin [Recovering/Resolving]
